FAERS Safety Report 8320430-5 (Version None)
Quarter: 2012Q2

REPORT INFORMATION
  Report Type: 
  Country: None (occurrence: None)
  Receive Date: 20120426
  Receipt Date: 20120426
  Transmission Date: 20120825
  Serious: Yes (Other)
  Sender: FDA-Public Use
  Company Number: None

PATIENT
  Sex: Female
  Weight: 72.5755 kg

DRUGS (1)
  1. NUBAIN [Suspect]
     Indication: NEPHROLITHIASIS
     Dosage: *AT PARK CITY HOSPITAL UTAH, AFTER ONE HOUR
     Dates: start: 20120411

REACTIONS (3)
  - BURNING SENSATION [None]
  - SCREAMING [None]
  - INCOHERENT [None]
